FAERS Safety Report 16992989 (Version 5)
Quarter: 2019Q4

REPORT INFORMATION
  Report Type: Spontaneous
  Country: AT (occurrence: AT)
  Receive Date: 20191105
  Receipt Date: 20191210
  Transmission Date: 20200122
  Serious: Yes (Other)
  Sender: FDA-Public Use
  Company Number: AT-PFIZER INC-2019471496

PATIENT

DRUGS (14)
  1. ATORVASTATIN CALCIUM. [Suspect]
     Active Substance: ATORVASTATIN CALCIUM
     Dosage: 80 MG, 1X/DAY (0-0-1)
     Route: 065
  2. PANTOPRAZOLE [Suspect]
     Active Substance: PANTOPRAZOLE
     Dosage: 20 MG, 1X/DAY
     Route: 065
  3. BRILIQUE [Suspect]
     Active Substance: TICAGRELOR
     Dosage: 180 MILLIGRAM, QD
     Route: 048
     Dates: end: 20180329
  4. INSULATARD [INSULIN HUMAN INJECTION, ISOPHANE] [Suspect]
     Active Substance: INSULIN HUMAN
     Dosage: 10-12 IU IN THE EVENINGS (GOAL: NORMAL BLOOD GLUCOSIS { 140MG%), ONCE DAILY
     Route: 065
  5. RAMIPRIL. [Suspect]
     Active Substance: RAMIPRIL
     Dosage: 10 MG, 1X/DAY (0-0-1)
     Route: 048
     Dates: start: 20190330
  6. BRILIQUE [Suspect]
     Active Substance: TICAGRELOR
     Dosage: 120 MILLIGRAM, QD
     Route: 048
     Dates: start: 20190330
  7. THROMBO ASS [Suspect]
     Active Substance: ASPIRIN
     Dosage: 100 MG, 1X/DAY (0-1-0)
     Route: 065
  8. PROCORALAN [Suspect]
     Active Substance: IVABRADINE
     Dosage: 10 MILLIGRAM, QD
     Route: 048
     Dates: start: 20190330
  9. XIGDUO XR [Suspect]
     Active Substance: DAPAGLIFLOZIN PROPANEDIOL\METFORMIN HYDROCHLORIDE
     Dosage: 1 DF, TWICE A DAY (1-0-1)
  10. XIGDUO XR [Suspect]
     Active Substance: DAPAGLIFLOZIN PROPANEDIOL\METFORMIN HYDROCHLORIDE
     Dosage: 10/2000 MILLIGRAM, QD
     Route: 048
  11. CONCOR [Suspect]
     Active Substance: BISOPROLOL FUMARATE
     Dosage: 5 MG, 1X/DAY (0-0- 1/2)
     Route: 065
  12. XIGDUO XR [Suspect]
     Active Substance: DAPAGLIFLOZIN PROPANEDIOL\METFORMIN HYDROCHLORIDE
     Dosage: 2DF, TWO TIMES A DAY
     Route: 048
  13. LASIX [Suspect]
     Active Substance: FUROSEMIDE
     Dosage: 40 MG, AS NEEDED
     Route: 065
  14. EUTHYROX [Suspect]
     Active Substance: LEVOTHYROXINE SODIUM
     Dosage: 100 UG, 1X/DAY (1-0-0)
     Route: 048

REACTIONS (2)
  - Oedema peripheral [Unknown]
  - Cardiac failure [Unknown]

NARRATIVE: CASE EVENT DATE: 20190418
